FAERS Safety Report 24085461 (Version 1)
Quarter: 2024Q3

REPORT INFORMATION
  Report Type: Spontaneous
  Country: IT (occurrence: IT)
  Receive Date: 20240712
  Receipt Date: 20240712
  Transmission Date: 20241017
  Serious: Yes (Life-Threatening, Hospitalization, Other)
  Sender: BRISTOL MYERS SQUIBB
  Company Number: IT-ASGENIA-AS2024005600

PATIENT
  Age: 1 Day
  Sex: Female
  Weight: 2.46 kg

DRUGS (5)
  1. LUSPATERCEPT [Suspect]
     Active Substance: LUSPATERCEPT
     Indication: Product used for unknown indication
     Dosage: 2 CYCLES
     Route: 064
     Dates: start: 2021
  2. LUSPATERCEPT [Suspect]
     Active Substance: LUSPATERCEPT
     Route: 064
     Dates: end: 202306
  3. DEFERASIROX [Suspect]
     Active Substance: DEFERASIROX
     Indication: Product used for unknown indication
     Route: 064
  4. ERGOCALCIFEROL [Concomitant]
     Active Substance: ERGOCALCIFEROL
     Indication: Product used for unknown indication
     Route: 064
  5. FOLIC ACID [Concomitant]
     Active Substance: FOLIC ACID
     Indication: Product used for unknown indication
     Route: 064

REACTIONS (4)
  - Premature baby [Unknown]
  - Foetal exposure during pregnancy [Unknown]
  - Ascites [Recovered/Resolved]
  - Liver disorder [Recovered/Resolved]
